FAERS Safety Report 16539879 (Version 1)
Quarter: 2019Q3

REPORT INFORMATION
  Report Type: Spontaneous
  Country: US (occurrence: US)
  Receive Date: 20190708
  Receipt Date: 20190708
  Transmission Date: 20191004
  Serious: No
  Sender: FDA-Public Use
  Company Number: US-PFIZER INC-2019286121

PATIENT

DRUGS (3)
  1. MYLOTARG [Suspect]
     Active Substance: GEMTUZUMAB OZOGAMICIN
     Dosage: UNK, CYCLIC (7+3 REGIMEN)
     Dates: start: 20190613
  2. MYLOTARG [Suspect]
     Active Substance: GEMTUZUMAB OZOGAMICIN
     Dosage: UNK, CYCLIC (7+3 REGIMEN)
     Dates: start: 20190616
  3. MYLOTARG [Suspect]
     Active Substance: GEMTUZUMAB OZOGAMICIN
     Indication: ACUTE MYELOID LEUKAEMIA
     Dosage: UNK, CYCLIC (7+3 REGIMEN)
     Dates: start: 20190610

REACTIONS (1)
  - Aspartate aminotransferase increased [Unknown]
